FAERS Safety Report 5098000-4 (Version None)
Quarter: 2006Q3

REPORT INFORMATION
  Report Type: 
  Country: None (occurrence: None)
  Receive Date: 20060905
  Receipt Date: 20060905
  Transmission Date: 20061208
  Serious: No
  Sender: FDA-Public Use
  Company Number: None

PATIENT
  Sex: Female
  Weight: 78.0187 kg

DRUGS (4)
  1. XOLAIR [Suspect]
     Indication: ASTHMA
     Dosage: 300 MG Q 4 WKS SQ
     Route: 058
     Dates: start: 20060721
  2. XOLAIR [Suspect]
     Indication: RHINITIS ALLERGIC
     Dosage: 300 MG Q 4 WKS SQ
     Route: 058
     Dates: start: 20060721
  3. XOLAIR [Suspect]
     Indication: ASTHMA
     Dosage: 300 MG Q 4 WKS SQ
     Route: 058
     Dates: start: 20060818
  4. XOLAIR [Suspect]
     Indication: RHINITIS ALLERGIC
     Dosage: 300 MG Q 4 WKS SQ
     Route: 058
     Dates: start: 20060818

REACTIONS (3)
  - ARTHRALGIA [None]
  - INSOMNIA [None]
  - PAIN [None]
